FAERS Safety Report 4765582-9 (Version None)
Quarter: 2005Q3

REPORT INFORMATION
  Report Type: 
  Country: None (occurrence: None)
  Receive Date: 20050908
  Receipt Date: 20050908
  Transmission Date: 20060218
  Serious: Yes (Other)
  Sender: FDA-Public Use
  Company Number: None

PATIENT
  Age: 74 Year
  Sex: Male
  Weight: 83.9154 kg

DRUGS (2)
  1. TERAZOSIN 5MG [Suspect]
     Indication: HYPERTENSION
     Dosage: ONE BY MOUTH AT BEDTIME
     Route: 048
  2. TERAZOSIN 5MG [Suspect]
     Indication: PROSTATIC DISORDER
     Dosage: ONE BY MOUTH AT BEDTIME
     Route: 048

REACTIONS (1)
  - DYSURIA [None]
